FAERS Safety Report 9228014 (Version 1)
Quarter: 2013Q2

REPORT INFORMATION
  Report Type: Spontaneous
  Country: CO (occurrence: CO)
  Receive Date: 20130412
  Receipt Date: 20130412
  Transmission Date: 20140414
  Serious: Yes (Death, Life-Threatening)
  Sender: FDA-Public Use
  Company Number: CO-ROCHE-1206754

PATIENT
  Age: 77 Year
  Sex: Female
  Weight: 60 kg

DRUGS (2)
  1. ACTILYSE [Suspect]
     Indication: ISCHAEMIC STROKE
     Dosage: 50 MG ONCE AS BOLUS
     Route: 042
     Dates: start: 20100812, end: 20100812
  2. LOSARTAN [Concomitant]
     Route: 048

REACTIONS (2)
  - Brain death [Fatal]
  - Cerebral haemorrhage [Not Recovered/Not Resolved]
